FAERS Safety Report 16051385 (Version 1)
Quarter: 2019Q1

REPORT INFORMATION
  Report Type: Other
  Country: US (occurrence: US)
  Receive Date: 20190308
  Receipt Date: 20190308
  Transmission Date: 20190418
  Serious: Yes (Other)
  Sender: FDA-Public Use
  Company Number: US-INTERCEPT-PM2019000361

PATIENT
  Sex: Female

DRUGS (3)
  1. OCALIVA [Suspect]
     Active Substance: OBETICHOLIC ACID
     Dosage: 10 MG, QD
     Route: 048
     Dates: start: 201902
  2. OCALIVA [Suspect]
     Active Substance: OBETICHOLIC ACID
     Indication: PRIMARY BILIARY CHOLANGITIS
     Dosage: 5 MG, QD
     Route: 048
     Dates: start: 2017
  3. OCALIVA [Suspect]
     Active Substance: OBETICHOLIC ACID
     Dosage: 10 MG, QD
     Route: 048
     Dates: end: 201902

REACTIONS (11)
  - Splenomegaly [Unknown]
  - Diarrhoea [Unknown]
  - Hepatic encephalopathy [Unknown]
  - Dental caries [Unknown]
  - Pneumonia [Unknown]
  - Macular degeneration [Unknown]
  - Anaemia [Unknown]
  - Ascites [Unknown]
  - Oesophageal varices haemorrhage [Unknown]
  - Blood alkaline phosphatase increased [Unknown]
  - Alopecia [Unknown]

NARRATIVE: CASE EVENT DATE: 2018
